FAERS Safety Report 19193229 (Version 2)
Quarter: 2021Q2

REPORT INFORMATION
  Report Type: Other
  Country: US (occurrence: US)
  Receive Date: 20210428
  Receipt Date: 20210501
  Transmission Date: 20210717
  Serious: Yes (Death)
  Sender: FDA-Public Use
  Company Number: US-ROCHE-2819088

PATIENT
  Sex: Male

DRUGS (2)
  1. RITUXAN [Suspect]
     Active Substance: RITUXIMAB
     Indication: ANTICOAGULANT THERAPY
  2. RITUXAN [Suspect]
     Active Substance: RITUXIMAB
     Indication: ARTERITIS
     Dosage: INFUSE 1000MG INTRAVENOUSLY FOR 1 DOSE (VIAL)
     Route: 042

REACTIONS (2)
  - Off label use [Unknown]
  - Death [Fatal]
